FAERS Safety Report 4551335-3 (Version None)
Quarter: 2005Q1

REPORT INFORMATION
  Report Type: 
  Country: None (occurrence: None)
  Receive Date: 20050113
  Receipt Date: 20041202
  Transmission Date: 20050727
  Serious: Yes (Life-Threatening, Hospitalization, Other)
  Sender: FDA-Public Use
  Company Number: US-MERCK-0412USA00410

PATIENT
  Age: 47 Year
  Sex: Male
  Weight: 102 kg

DRUGS (19)
  1. VIOXX [Suspect]
     Indication: ARTHRALGIA
     Route: 048
     Dates: start: 20020101, end: 20031201
  2. VIOXX [Suspect]
     Route: 048
     Dates: start: 20031230, end: 20040101
  3. VIOXX [Suspect]
     Route: 048
     Dates: start: 20040319, end: 20040917
  4. VIOXX [Suspect]
     Route: 048
     Dates: start: 20040101, end: 20040319
  5. VIOXX [Suspect]
     Indication: FIBROMYALGIA
     Route: 048
     Dates: start: 20020101, end: 20031201
  6. VIOXX [Suspect]
     Route: 048
     Dates: start: 20031230, end: 20040101
  7. VIOXX [Suspect]
     Route: 048
     Dates: start: 20040319, end: 20040917
  8. VIOXX [Suspect]
     Route: 048
     Dates: start: 20040101, end: 20040319
  9. PLAVIX [Concomitant]
     Route: 065
  10. LEVOTHYROXINE SODIUM [Concomitant]
     Indication: HYPOTHYROIDISM
     Route: 065
  11. PRILOSEC [Concomitant]
     Indication: GASTROOESOPHAGEAL REFLUX DISEASE
     Route: 065
  12. FLEXERIL [Concomitant]
     Indication: MUSCULOSKELETAL DISCOMFORT
     Route: 048
  13. FLEXERIL [Concomitant]
     Indication: SLEEP DISORDER
     Route: 048
  14. PRAVACHOL [Concomitant]
     Route: 065
  15. ASPIRIN [Concomitant]
     Route: 065
  16. ASCORBIC ACID [Concomitant]
     Route: 065
  17. SINEMET [Concomitant]
     Indication: PARKINSON'S DISEASE
     Route: 048
  18. CLONAZEPAM [Concomitant]
     Indication: ANXIETY
     Route: 065
  19. CLONAZEPAM [Concomitant]
     Indication: SLEEP DISORDER
     Route: 065

REACTIONS (2)
  - ACUTE MYOCARDIAL INFARCTION [None]
  - DRUG INEFFECTIVE [None]
